FAERS Safety Report 21812402 (Version 1)
Quarter: 2022Q4

REPORT INFORMATION
  Report Type: Spontaneous
  Country: US (occurrence: None)
  Receive Date: 20221230
  Receipt Date: 20221230
  Transmission Date: 20230113
  Serious: Yes (Disabling, Other)
  Sender: FDA-Public Use
  Company Number: None

PATIENT
  Age: 35 Year
  Sex: Female
  Weight: 94.5 kg

DRUGS (7)
  1. LEXAPRO [Suspect]
     Active Substance: ESCITALOPRAM OXALATE
     Indication: Depression
     Route: 048
     Dates: start: 20210601, end: 20220131
  2. LAMICTAL [Concomitant]
     Active Substance: LAMOTRIGINE
  3. NALTREXONE [Concomitant]
     Active Substance: NALTREXONE
  4. COPPER-CONTAINING INTRAUTERINE DEVICE (IUD) [Concomitant]
     Active Substance: COPPER
  5. VITAMIN D3 [Concomitant]
     Active Substance: CHOLECALCIFEROL
  6. ZYRTEC [Concomitant]
     Active Substance: CETIRIZINE HYDROCHLORIDE
  7. FLONASE [Concomitant]
     Active Substance: FLUTICASONE PROPIONATE

REACTIONS (9)
  - Bursitis [None]
  - Arthralgia [None]
  - Dental restoration failure [None]
  - Arthralgia [None]
  - Loss of personal independence in daily activities [None]
  - Impaired work ability [None]
  - Fatigue [None]
  - Hypersomnia [None]
  - Withdrawal syndrome [None]

NARRATIVE: CASE EVENT DATE: 20210605
